FAERS Safety Report 9013351 (Version 5)
Quarter: 2013Q3

REPORT INFORMATION
  Report Type: Spontaneous
  Country: US (occurrence: US)
  Receive Date: 20130114
  Receipt Date: 20130708
  Transmission Date: 20140515
  Serious: No
  Sender: FDA-Public Use
  Company Number: US-009507513-1301USA004274

PATIENT
  Age: 29 Year
  Sex: Female
  Weight: 84.35 kg

DRUGS (2)
  1. PEGINTRON [Suspect]
     Indication: HEPATITIS C
     Dosage: REDIPEN
     Dates: start: 20130103
  2. REBETOL [Suspect]
     Indication: HEPATITIS C
     Dosage: UNK
     Route: 048
     Dates: start: 20130103

REACTIONS (44)
  - Pain [Unknown]
  - Headache [Unknown]
  - Fatigue [Unknown]
  - Pain [Unknown]
  - Nausea [Unknown]
  - Dizziness [Unknown]
  - Depression [Unknown]
  - Insomnia [Unknown]
  - Decreased appetite [Unknown]
  - Oropharyngeal pain [Unknown]
  - Headache [Unknown]
  - Dry skin [Unknown]
  - Rash macular [Unknown]
  - Weight increased [Unknown]
  - Blood disorder [Unknown]
  - Lymphatic disorder [Unknown]
  - Fatigue [Unknown]
  - Abdominal pain [Unknown]
  - Alopecia [Unknown]
  - Memory impairment [Unknown]
  - Headache [Unknown]
  - Fatigue [Unknown]
  - White blood cell count decreased [Unknown]
  - Fatigue [Unknown]
  - Memory impairment [Unknown]
  - Cough [Unknown]
  - Oropharyngeal pain [Unknown]
  - Dry mouth [Unknown]
  - Lymphadenopathy [Unknown]
  - Anxiety [Unknown]
  - Hyperhidrosis [Unknown]
  - Amenorrhoea [Recovered/Resolved]
  - Muscle spasms [Unknown]
  - Headache [Unknown]
  - Fatigue [Unknown]
  - Weight increased [Unknown]
  - Weight decreased [Unknown]
  - Decreased appetite [Unknown]
  - Dizziness [Unknown]
  - Blood glucose decreased [Unknown]
  - Asthenia [Unknown]
  - Motion sickness [Unknown]
  - Irritability [Unknown]
  - Confusional state [Unknown]
